FAERS Safety Report 15923562 (Version 2)
Quarter: 2019Q1

REPORT INFORMATION
  Report Type: Report from Study
  Country: IT (occurrence: IT)
  Receive Date: 20190206
  Receipt Date: 20190222
  Transmission Date: 20190417
  Serious: Yes (Hospitalization)
  Sender: FDA-Public Use
  Company Number: IT-ACCORD-105740

PATIENT
  Age: 52 Year
  Sex: Female

DRUGS (4)
  1. QUETIAPINE. [Suspect]
     Active Substance: QUETIAPINE
     Route: 048
     Dates: start: 20180422, end: 20180422
  2. VALDORM (FLURAZEPAM HYDROCHLORIDE) [Suspect]
     Active Substance: FLURAZEPAM HYDROCHLORIDE
     Dosage: STRENGTH 30 MG
     Route: 048
     Dates: start: 20180422, end: 20180422
  3. DEPAKIN [Suspect]
     Active Substance: VALPROATE SODIUM
     Route: 048
     Dates: start: 20180422, end: 20180422
  4. LARGACTIL [Suspect]
     Active Substance: CHLORPROMAZINE
     Dosage: STRENGTH 100 MG
     Route: 048
     Dates: start: 20180422, end: 20180422

REACTIONS (4)
  - Confusional state [Recovered/Resolved]
  - Dysarthria [Recovered/Resolved]
  - Drug abuse [Unknown]
  - Pyrexia [Recovered/Resolved]

NARRATIVE: CASE EVENT DATE: 20180422
